FAERS Safety Report 6601165-3 (Version None)
Quarter: 2010Q1

REPORT INFORMATION
  Report Type: 
  Country: None (occurrence: None)
  Receive Date: 20100224
  Receipt Date: 20100224
  Transmission Date: 20100710
  Serious: Yes (Disabling)
  Sender: FDA-Public Use
  Company Number: None

PATIENT
  Age: 77 Year
  Sex: Female
  Weight: 56.6996 kg

DRUGS (1)
  1. RECLAST [Suspect]
     Indication: OSTEOPOROSIS
     Dosage: 1MG. PER 100 ML'S (CC'S) (NURSE SUPPLIED) 1/YR I.V.
     Route: 042
     Dates: start: 20090630

REACTIONS (8)
  - ACTIVITIES OF DAILY LIVING IMPAIRED [None]
  - ARTHRALGIA [None]
  - ARTHROPATHY [None]
  - MUSCLE SWELLING [None]
  - MUSCULOSKELETAL DISORDER [None]
  - QUALITY OF LIFE DECREASED [None]
  - SYNOVIAL CYST [None]
  - WEIGHT DECREASED [None]
